FAERS Safety Report 21060785 (Version 8)
Quarter: 2022Q3

REPORT INFORMATION
  Report Type: Spontaneous
  Country: US (occurrence: US)
  Receive Date: 20220709
  Receipt Date: 20220830
  Transmission Date: 20221027
  Serious: Yes (Hospitalization, Other)
  Sender: FDA-Public Use
  Company Number: US-TEVA-2022-US-2053575

PATIENT
  Age: 64 Year
  Sex: Female
  Weight: 46.27 kg

DRUGS (8)
  1. TORSEMIDE [Suspect]
     Active Substance: TORSEMIDE
     Indication: Inappropriate antidiuretic hormone secretion
     Dosage: DURATION : 7 DAYS
     Route: 065
     Dates: start: 20220525, end: 20220601
  2. TORSEMIDE [Suspect]
     Active Substance: TORSEMIDE
     Indication: Blood sodium decreased
     Route: 065
     Dates: start: 20220531, end: 20220610
  3. ESTRADIOL [Suspect]
     Active Substance: ESTRADIOL
     Indication: Product used for unknown indication
     Route: 065
  4. HYDRALAZINE [Suspect]
     Active Substance: HYDRALAZINE HYDROCHLORIDE
     Indication: Product used for unknown indication
     Dosage: 300 MILLIGRAM DAILY;
     Route: 065
  5. SAPHRIS [Suspect]
     Active Substance: ASENAPINE MALEATE
     Indication: Bipolar disorder
     Route: 060
  6. METOPROLOL SUCCINATE [Concomitant]
     Active Substance: METOPROLOL SUCCINATE
     Indication: Product used for unknown indication
  7. CATAPRES [Concomitant]
     Active Substance: CLONIDINE HYDROCHLORIDE
     Indication: Product used for unknown indication
     Dosage: .6 MILLIGRAM DAILY;
  8. SYNTHROID [Concomitant]
     Active Substance: LEVOTHYROXINE SODIUM
     Indication: Product used for unknown indication
     Dosage: 112 MILLIGRAM DAILY;

REACTIONS (50)
  - Acute kidney injury [Unknown]
  - Asthenia [Unknown]
  - Blood pressure decreased [Unknown]
  - Dizziness [Unknown]
  - Blood sodium decreased [Unknown]
  - Head discomfort [Unknown]
  - Dry mouth [Unknown]
  - Nausea [Unknown]
  - Dry skin [Unknown]
  - Glomerular filtration rate decreased [Unknown]
  - Product prescribing issue [Unknown]
  - Muscle twitching [Not Recovered/Not Resolved]
  - Dyskinesia [Unknown]
  - Electric shock sensation [Unknown]
  - Oedema peripheral [Recovered/Resolved]
  - Protein urine [Unknown]
  - Ketonuria [Unknown]
  - Withdrawal syndrome [Recovered/Resolved]
  - Fatigue [Unknown]
  - Hiccups [Unknown]
  - Vision blurred [Not Recovered/Not Resolved]
  - Muscle spasms [Unknown]
  - Paraesthesia [Unknown]
  - Pain in extremity [Unknown]
  - Peripheral swelling [Unknown]
  - Hypotension [Not Recovered/Not Resolved]
  - Chills [Not Recovered/Not Resolved]
  - Asthenia [Not Recovered/Not Resolved]
  - Musculoskeletal stiffness [Not Recovered/Not Resolved]
  - Head discomfort [Not Recovered/Not Resolved]
  - Arthralgia [Not Recovered/Not Resolved]
  - Insomnia [Not Recovered/Not Resolved]
  - Stress [Not Recovered/Not Resolved]
  - Gait disturbance [Recovered/Resolved]
  - Oedema peripheral [Not Recovered/Not Resolved]
  - Joint swelling [Not Recovered/Not Resolved]
  - Dehydration [Unknown]
  - Drug ineffective [Unknown]
  - Headache [Unknown]
  - Skin discolouration [Unknown]
  - Lip dry [Unknown]
  - Ageusia [Unknown]
  - Myalgia [Unknown]
  - Skin wrinkling [Unknown]
  - Abdominal pain [Unknown]
  - Abdominal discomfort [Unknown]
  - Tremor [Unknown]
  - Muscular weakness [Unknown]
  - Dyspnoea [Unknown]
  - Chest discomfort [Unknown]

NARRATIVE: CASE EVENT DATE: 20220101
